FAERS Safety Report 8021385-3 (Version None)
Quarter: 2012Q1

REPORT INFORMATION
  Report Type: 
  Country: None (occurrence: None)
  Receive Date: 20120104
  Receipt Date: 20111229
  Transmission Date: 20120608
  Serious: Yes (Hospitalization, Congenital Anomaly, Other)
  Sender: FDA-Public Use
  Company Number: US-PFIZER INC-2011158626

PATIENT
  Sex: Female
  Weight: 3.3 kg

DRUGS (10)
  1. EFFEXOR XR [Suspect]
     Dosage: 150 MG, UNK
     Route: 064
     Dates: start: 20030101
  2. EFFEXOR XR [Suspect]
     Dosage: 75 MG THREE CAPSULES DAILY
     Route: 064
     Dates: start: 20040101
  3. EFFEXOR XR [Suspect]
     Dosage: 150 MG, A DAY
     Route: 064
     Dates: start: 20020801
  4. EFFEXOR XR [Suspect]
     Dosage: 300 MG, IN THE MORNING
     Route: 064
     Dates: start: 20020820
  5. EFFEXOR XR [Suspect]
     Dosage: 75 MG THREE CAPSULES IN THE MORNING
     Route: 064
     Dates: start: 20040101
  6. EFFEXOR XR [Suspect]
     Dosage: 75 MG, A DAY
     Route: 064
     Dates: start: 20020701
  7. EFFEXOR XR [Suspect]
     Indication: DEPRESSION
     Dosage: 37.5 MG,  A DAY
     Route: 064
     Dates: start: 20020718
  8. EFFEXOR XR [Suspect]
     Dosage: DOSE TAPERED (UNKNOWN UNITS)
     Route: 064
     Dates: start: 20030930
  9. EFFEXOR XR [Suspect]
     Dosage: 225 MG, A DAY
     Route: 064
     Dates: start: 20031030
  10. EFFEXOR XR [Suspect]
     Dosage: UNK
     Route: 064
     Dates: start: 20040304

REACTIONS (9)
  - VENTRICULAR SEPTAL DEFECT [None]
  - POLYCYTHAEMIA [None]
  - JAUNDICE NEONATAL [None]
  - MATERNAL EXPOSURE TIMING UNSPECIFIED [None]
  - COARCTATION OF THE AORTA [None]
  - TRANSIENT TACHYPNOEA OF THE NEWBORN [None]
  - ATRIAL SEPTAL DEFECT [None]
  - PATENT DUCTUS ARTERIOSUS [None]
  - DRUG WITHDRAWAL SYNDROME NEONATAL [None]
